FAERS Safety Report 10916571 (Version 2)
Quarter: 2015Q2

REPORT INFORMATION
  Report Type: Spontaneous
  Country: US (occurrence: US)
  Receive Date: 20150316
  Receipt Date: 20150524
  Transmission Date: 20150821
  Serious: No
  Sender: FDA-Public Use
  Company Number: US-JNJFOC-20130804539

PATIENT
  Sex: Male
  Weight: 99.79 kg

DRUGS (13)
  1. ZYTIGA [Suspect]
     Active Substance: ABIRATERONE ACETATE
     Indication: PROSTATE CANCER
     Dosage: 250 MG X 4 TABLETS
     Route: 048
     Dates: start: 2013
  2. ATIVAN [Concomitant]
     Active Substance: LORAZEPAM
     Indication: ANXIETY
     Dosage: 2-3 TIMES AS NEEDED
     Route: 048
     Dates: start: 201202
  3. CLARITIN [Concomitant]
     Active Substance: LORATADINE
     Indication: UPPER-AIRWAY COUGH SYNDROME
     Route: 048
  4. VITAMIN K [Concomitant]
     Active Substance: PHYTONADIONE
     Route: 065
  5. VESICARE [Concomitant]
     Active Substance: SOLIFENACIN SUCCINATE
     Indication: BLADDER DISORDER
     Route: 048
     Dates: start: 2013
  6. CALCIUM [Concomitant]
     Active Substance: CALCIUM
     Route: 065
  7. WELLBUTRIN [Concomitant]
     Active Substance: BUPROPION HYDROCHLORIDE
     Indication: NEOPLASM MALIGNANT
     Route: 048
     Dates: start: 201202
  8. CELEXA [Concomitant]
     Active Substance: CITALOPRAM HYDROBROMIDE
     Indication: NEOPLASM MALIGNANT
     Route: 048
     Dates: start: 201202
  9. SEROQUEL [Concomitant]
     Active Substance: QUETIAPINE FUMARATE
     Indication: NEOPLASM MALIGNANT
     Route: 048
     Dates: start: 201202
  10. PREDNISONE. [Concomitant]
     Active Substance: PREDNISONE
     Route: 065
  11. FUROSEMIDE. [Concomitant]
     Active Substance: FUROSEMIDE
     Indication: FLUID RETENTION
     Route: 048
     Dates: start: 2013
  12. VITAMIN D [Concomitant]
     Active Substance: CHOLECALCIFEROL
     Route: 065
  13. PROSTEON [Concomitant]
     Active Substance: MINERALS
     Indication: BONE DISORDER
     Route: 065

REACTIONS (2)
  - Hyperhidrosis [Not Recovered/Not Resolved]
  - Dermal cyst [Unknown]

NARRATIVE: CASE EVENT DATE: 2013
